FAERS Safety Report 8340121-4 (Version None)
Quarter: 2012Q2

REPORT INFORMATION
  Report Type: 
  Country: None (occurrence: None)
  Receive Date: 20120507
  Receipt Date: 20120426
  Transmission Date: 20120825
  Serious: Yes (Other)
  Sender: FDA-Public Use
  Company Number: US-CELGENEUS-163-21880-11063625

PATIENT
  Sex: Male
  Weight: 82.1 kg

DRUGS (14)
  1. DEXAMETHASONE [Suspect]
     Indication: MULTIPLE MYELOMA
     Dosage: 40 MILLIGRAM
     Route: 065
     Dates: start: 20080901
  2. ASPIRIN [Concomitant]
     Route: 065
     Dates: start: 20080901, end: 20110601
  3. RED BLOOD CELLS [Concomitant]
     Route: 041
     Dates: start: 20110815
  4. RED BLOOD CELLS [Concomitant]
     Dosage: 1 UNIT
     Route: 041
     Dates: start: 20110825
  5. PLATELETS [Concomitant]
     Route: 041
  6. PLATELETS [Concomitant]
     Route: 041
     Dates: start: 20111003, end: 20111003
  7. DEXAMETHASONE [Suspect]
     Dosage: 20 MILLIGRAM
     Route: 065
     Dates: start: 20090701, end: 20100701
  8. NEURONTIN [Concomitant]
     Route: 065
     Dates: start: 20101221
  9. CELEXA [Concomitant]
     Route: 065
     Dates: start: 20101221
  10. PLAVIX [Concomitant]
  11. RED BLOOD CELLS [Concomitant]
     Route: 041
     Dates: start: 20110721
  12. RED BLOOD CELLS [Concomitant]
     Dosage: 2 UNITS
     Route: 041
     Dates: start: 20110926, end: 20110926
  13. REVLIMID [Suspect]
     Indication: MULTIPLE MYELOMA
     Dosage: 10 MILLIGRAM
     Route: 048
     Dates: start: 20070101, end: 20070401
  14. REVLIMID [Suspect]
     Dosage: 10 MILLIGRAM
     Route: 048
     Dates: start: 20080901, end: 20110623

REACTIONS (2)
  - MYELODYSPLASTIC SYNDROME [None]
  - PANCYTOPENIA [None]
